FAERS Safety Report 9959339 (Version 1)
Quarter: 2014Q1

REPORT INFORMATION
  Report Type: Report from Study
  Country: US (occurrence: US)
  Receive Date: 20140305
  Receipt Date: 20140305
  Transmission Date: 20141002
  Serious: No
  Sender: FDA-Public Use
  Company Number: US-ABBVIE-13P-163-1106590-00

PATIENT
  Age: 52 Year
  Sex: Female

DRUGS (7)
  1. HUMIRA [Suspect]
     Indication: ANKYLOSING SPONDYLITIS
     Dates: start: 20130410
  2. METOPROLOL [Concomitant]
     Indication: MITRAL VALVE PROLAPSE
     Dosage: 25MG DAILY
  3. MELOXICAM [Concomitant]
     Indication: ANKYLOSING SPONDYLITIS
     Dosage: 15MG DAILY
  4. OMEPRAZOLE [Concomitant]
     Indication: PRODUCT USED FOR UNKNOWN INDICATION
     Dosage: 20MG DAILY
  5. LORTAB [Concomitant]
     Indication: PAIN
     Dosage: 5/500MG TAKES NO MORE THAN 2 IN A 24 HOUR PERIOD
  6. POTASSIUM GLUCONATE [Concomitant]
     Indication: PRODUCT USED FOR UNKNOWN INDICATION
     Dosage: 550MG DAILY
  7. VITAMIN RICH COD LIVER OIL [Concomitant]
     Indication: PRODUCT USED FOR UNKNOWN INDICATION
     Dosage: (VITAMIN A+D) 1 DAILY

REACTIONS (1)
  - Blood pressure increased [Recovering/Resolving]
